FAERS Safety Report 5707974-7 (Version None)
Quarter: 2008Q2

REPORT INFORMATION
  Report Type: 
  Country: None (occurrence: None)
  Receive Date: 20080414
  Receipt Date: 20080403
  Transmission Date: 20081010
  Serious: Yes (Life-Threatening)
  Sender: FDA-Public Use
  Company Number: 77970

PATIENT
  Age: 48 Year
  Sex: Male

DRUGS (6)
  1. IBUPROFEN [Suspect]
     Indication: PAIN
     Dosage: 400MG/ TID/ ORAL
     Route: 048
     Dates: start: 20080228, end: 20080317
  2. ATENOLOL [Concomitant]
  3. BACLOFEN [Concomitant]
  4. LANSOPRAZOLE [Concomitant]
  5. SERTRALINE [Concomitant]
  6. SOLIFENACIN [Concomitant]

REACTIONS (3)
  - DUODENITIS HAEMORRHAGIC [None]
  - HEART RATE INCREASED [None]
  - SYSTOLIC HYPERTENSION [None]
